FAERS Safety Report 17078488 (Version 1)
Quarter: 2019Q4

REPORT INFORMATION
  Report Type: Report from Study
  Country: None (occurrence: CA)
  Receive Date: 20191126
  Receipt Date: 20191126
  Transmission Date: 20200122
  Serious: Yes (Other)
  Sender: FDA-Public Use
  Company Number: CA-ABBVIE-19K-028-3014006-00

PATIENT
  Sex: Male

DRUGS (1)
  1. HUMIRA [Suspect]
     Active Substance: ADALIMUMAB
     Indication: CROHN^S DISEASE
     Route: 058
     Dates: start: 20150320

REACTIONS (10)
  - Dysphagia [Not Recovered/Not Resolved]
  - Vomiting [Unknown]
  - Nasopharyngitis [Recovering/Resolving]
  - Eating disorder [Not Recovered/Not Resolved]
  - Oesophageal food impaction [Unknown]
  - Rectal haemorrhage [Recovering/Resolving]
  - Adverse food reaction [Unknown]
  - Rectal fissure [Recovering/Resolving]
  - Oesophageal stenosis [Not Recovered/Not Resolved]
  - Abnormal faeces [Unknown]

NARRATIVE: CASE EVENT DATE: 2019
